FAERS Safety Report 18847605 (Version 1)
Quarter: 2021Q1

REPORT INFORMATION
  Report Type: Spontaneous
  Country: US (occurrence: US)
  Receive Date: 20210204
  Receipt Date: 20210204
  Transmission Date: 20210419
  Serious: No
  Sender: FDA-Public Use
  Company Number: US-SA-2021SA031341

PATIENT
  Age: 49 Year

DRUGS (1)
  1. THYROGEN [Suspect]
     Active Substance: THYROTROPIN ALFA
     Indication: RADIOACTIVE IODINE THERAPY
     Dosage: 0.9 MG
     Route: 065

REACTIONS (1)
  - Intercepted product preparation error [Unknown]
